FAERS Safety Report 5003695-7 (Version None)
Quarter: 2006Q2

REPORT INFORMATION
  Report Type: 
  Country: None (occurrence: None)
  Receive Date: 20060515
  Receipt Date: 20060428
  Transmission Date: 20061013
  Serious: Yes (Other)
  Sender: FDA-Public Use
  Company Number: 2006P1000291

PATIENT
  Sex: Female

DRUGS (2)
  1. NICARDIPINE HYDROCHLORIDE [Suspect]
     Indication: HYPERTENSION
  2. LABETALOL [Concomitant]

REACTIONS (9)
  - ABORTION INDUCED [None]
  - DRUG EXPOSURE DURING PREGNANCY [None]
  - FOETAL HAEMOGLOBIN DECREASED [None]
  - FOETAL MOVEMENTS DECREASED [None]
  - HYDROPS FOETALIS [None]
  - HYPOXIA [None]
  - MATERNAL CONDITION AFFECTING FOETUS [None]
  - NUCLEAR MAGNETIC RESONANCE IMAGING BRAIN ABNORMAL [None]
  - PARVOVIRUS B19 SEROLOGY POSITIVE [None]
